FAERS Safety Report 17298542 (Version 1)
Quarter: 2020Q1

REPORT INFORMATION
  Report Type: Report from Study
  Country: CO (occurrence: CO)
  Receive Date: 20200122
  Receipt Date: 20200122
  Transmission Date: 20200409
  Serious: Yes (Life-Threatening, Other)
  Sender: FDA-Public Use
  Company Number: CO-ROCHE-2456502

PATIENT
  Sex: Female

DRUGS (2)
  1. HERCEPTIN [Suspect]
     Active Substance: TRASTUZUMAB
     Indication: PRODUCT USED FOR UNKNOWN INDICATION
     Route: 065
  2. XELODA [Suspect]
     Active Substance: CAPECITABINE
     Indication: PRODUCT USED FOR UNKNOWN INDICATION
     Route: 048

REACTIONS (11)
  - Abdominal pain [Unknown]
  - Mass [Unknown]
  - Pain [Unknown]
  - Apparent death [Unknown]
  - Colon neoplasm [Unknown]
  - Gait inability [Unknown]
  - Swelling [Unknown]
  - Asthenia [Unknown]
  - Discomfort [Unknown]
  - Pain in extremity [Unknown]
  - Visual impairment [Unknown]
